FAERS Safety Report 9892210 (Version 6)
Quarter: 2014Q1

REPORT INFORMATION
  Report Type: Report from Study
  Country: US (occurrence: US)
  Receive Date: 20140212
  Receipt Date: 20140321
  Transmission Date: 20141002
  Serious: Yes (Hospitalization, Other)
  Sender: FDA-Public Use
  Company Number: US-SANOFI-AVENTIS-2013SA094054

PATIENT
  Age: 58 Year
  Sex: Male
  Weight: 83 kg

DRUGS (21)
  1. AUBAGIO [Suspect]
     Indication: MULTIPLE SCLEROSIS
     Route: 048
     Dates: start: 20130719, end: 20140103
  2. AUBAGIO [Suspect]
     Indication: MULTIPLE SCLEROSIS
     Route: 048
     Dates: start: 20130719, end: 20140103
  3. CORTICOSTEROIDS [Suspect]
  4. ACETAMINOPHEN W/CODEINE [Concomitant]
     Indication: PAIN
     Dosage: 1 TABLET BY MOUTH EVERY 6 HOURS AS NEEDED
     Route: 048
  5. AMLODIPINE BESILATE [Concomitant]
     Route: 048
  6. AMPYRA [Concomitant]
     Route: 048
  7. BUDESONIDE/FORMOTEROL FUMARATE [Concomitant]
     Route: 055
  8. IPRATROPIUM BROMIDE/SALBUTAMOL SULFATE [Concomitant]
     Route: 055
  9. ALBUTEROL W/IPRATROPIUM [Concomitant]
     Route: 065
  10. FOLIC ACID [Concomitant]
     Route: 048
  11. GABAPENTIN [Concomitant]
     Route: 048
  12. GAMMAGARD [Concomitant]
     Route: 065
  13. HYDROCODONE BITARTRATE/PARACETAMOL [Concomitant]
     Indication: PAIN
     Dosage: 1 TABLET BY MOUTH 2 TIMES DAILY AS NEEDED
     Route: 048
  14. HYDROCORTISONE ACETATE [Concomitant]
     Route: 054
  15. METOPROLOL SUCCINATE [Concomitant]
     Route: 048
  16. GLYCERYL TRINITRATE [Concomitant]
     Dosage: 0.4 MG UNDER THE TONGUE EVERY 5 MINUTES AS NEEDED
     Route: 060
  17. OMEPRAZOLE [Concomitant]
     Route: 048
  18. PRAVASTATIN SODIUM [Concomitant]
     Route: 065
  19. PREDNISONE [Concomitant]
     Route: 048
  20. PROCHLORPERAZINE EDISYLATE [Concomitant]
     Route: 065
  21. SULFAMETHOXAZOLE/TRIMETHOPRIM [Concomitant]
     Dosage: DOSE:1 UNIT(S)
     Route: 048

REACTIONS (18)
  - Pulmonary fibrosis [Unknown]
  - Rheumatoid arthritis [Unknown]
  - Acute respiratory failure [Unknown]
  - Pneumonia [Unknown]
  - Chronic obstructive pulmonary disease [Unknown]
  - Renal disorder [Unknown]
  - Arteriosclerosis [Unknown]
  - Liver disorder [Unknown]
  - Hepatic enzyme increased [Not Recovered/Not Resolved]
  - Sleep apnoea syndrome [Unknown]
  - Tachycardia [Unknown]
  - Anaemia [Unknown]
  - Hyperglycaemia [Unknown]
  - Optic neuritis [Unknown]
  - Gastritis [Unknown]
  - Impaired healing [Unknown]
  - Headache [Unknown]
  - Hypertension [Unknown]
